FAERS Safety Report 5272594-8 (Version None)
Quarter: 2007Q1

REPORT INFORMATION
  Report Type: 
  Country: None (occurrence: None)
  Receive Date: 20070320
  Receipt Date: 20070320
  Transmission Date: 20070707
  Serious: No
  Sender: FDA-Public Use
  Company Number: None

PATIENT
  Age: 48 Year
  Sex: Female
  Weight: 74.8435 kg

DRUGS (2)
  1. ZOLOFT [Suspect]
     Indication: ANXIETY
     Dosage: 50 MG. 1 PER DAY PO
     Route: 048
     Dates: start: 19950301, end: 20070318
  2. ZOLOFT [Suspect]
     Indication: DEPRESSION
     Dosage: 50 MG. 1 PER DAY PO
     Route: 048
     Dates: start: 19950301, end: 20070318

REACTIONS (5)
  - CRYING [None]
  - DRUG DEPENDENCE [None]
  - DRUG WITHDRAWAL SYNDROME [None]
  - DYSKINESIA [None]
  - TREMOR [None]
